FAERS Safety Report 5828121-7 (Version None)
Quarter: 2008Q3

REPORT INFORMATION
  Report Type: 
  Country: None (occurrence: None)
  Receive Date: 20080730
  Receipt Date: 20080730
  Transmission Date: 20090109
  Serious: Yes (Hospitalization)
  Sender: FDA-Public Use
  Company Number: None

PATIENT
  Sex: Male
  Weight: 82.8 kg

DRUGS (1)
  1. NOVOSEVEN [Suspect]
     Indication: HAEMORRHAGE
     Dosage: 90 MCG/KG EVERY 2 HOURS IV
     Route: 042
     Dates: start: 20080601, end: 20080705

REACTIONS (3)
  - ARTERIAL DISORDER [None]
  - ISCHAEMIA [None]
  - PERIPHERAL EMBOLISM [None]
